FAERS Safety Report 24976282 (Version 2)
Quarter: 2025Q1

REPORT INFORMATION
  Report Type: Report from Study
  Country: US (occurrence: US)
  Receive Date: 20250217
  Receipt Date: 20250310
  Transmission Date: 20250408
  Serious: Yes (Hospitalization)
  Sender: SUNOVION
  Company Number: US-SMPA-2025SPA001483

PATIENT

DRUGS (4)
  1. ORGOVYX [Suspect]
     Active Substance: RELUGOLIX
     Indication: Prostate cancer
     Route: 048
  2. ORGOVYX [Suspect]
     Active Substance: RELUGOLIX
     Dosage: 120 MG, QD
     Route: 048
     Dates: start: 20250124
  3. ATORVASTATIN [Suspect]
     Active Substance: ATORVASTATIN
     Dosage: 120 MG, QD (SUPPOSED TO TAKE 40 MG AND TOOK 120 MG BY MISTAKE)
     Route: 065
  4. CARVEDILOL [Suspect]
     Active Substance: CARVEDILOL
     Route: 065

REACTIONS (6)
  - Gait disturbance [Unknown]
  - Myalgia [Unknown]
  - Muscular weakness [Unknown]
  - Pain [Unknown]
  - Hot flush [Unknown]
  - Therapy cessation [Unknown]

NARRATIVE: CASE EVENT DATE: 20250101
